FAERS Safety Report 4682240-X (Version None)
Quarter: 2005Q2

REPORT INFORMATION
  Report Type: 
  Country: None (occurrence: None)
  Receive Date: 20050606
  Receipt Date: 20050603
  Transmission Date: 20051028
  Serious: Yes (Other)
  Sender: FDA-Public Use
  Company Number: PHNU2005DE02150

PATIENT
  Sex: Female

DRUGS (1)
  1. LEPONEX / CLOZARIL (CLOZAPINE) [Suspect]
     Route: 048
     Dates: end: 20000101

REACTIONS (1)
  - HYPOCHROMIC ANAEMIA [None]
